FAERS Safety Report 9263652 (Version 1)
Quarter: 2013Q2

REPORT INFORMATION
  Report Type: Spontaneous
  Country: US (occurrence: US)
  Receive Date: 20130430
  Receipt Date: 20130430
  Transmission Date: 20140414
  Serious: No
  Sender: FDA-Public Use
  Company Number: US-COVIDIEN/TYCO HEALTHCARE/MALLINCKRODT-T201301481

PATIENT
  Age: 52 Year
  Sex: Female
  Weight: 65.99 kg

DRUGS (3)
  1. METHYLIN [Suspect]
     Indication: ATTENTION DEFICIT/HYPERACTIVITY DISORDER
     Dosage: 10 MG, DAILY
     Route: 048
     Dates: start: 201211
  2. METHYLPHENIDATE /00083802/ [Suspect]
     Indication: ATTENTION DEFICIT/HYPERACTIVITY DISORDER
     Dosage: 36 MG, ONE TABLET DAILY
     Route: 048
     Dates: start: 20130206
  3. METHYLPHENIDATE /00083802/ [Suspect]
     Dosage: ONE TABLET DAILY
     Route: 048
     Dates: start: 201311, end: 20130205

REACTIONS (3)
  - Disturbance in attention [Not Recovered/Not Resolved]
  - Drug effect decreased [Not Recovered/Not Resolved]
  - Product substitution issue [None]
